FAERS Safety Report 8304651-3 (Version None)
Quarter: 2012Q2

REPORT INFORMATION
  Report Type: 
  Country: None (occurrence: None)
  Receive Date: 20120423
  Receipt Date: 20120418
  Transmission Date: 20120825
  Serious: Yes (Death, Hospitalization)
  Sender: FDA-Public Use
  Company Number: PHEH2012US008383

PATIENT
  Sex: Female

DRUGS (1)
  1. GILENYA [Suspect]
     Indication: MULTIPLE SCLEROSIS
     Route: 048

REACTIONS (9)
  - BACK PAIN [None]
  - PAIN [None]
  - HYPERTENSION [None]
  - WEIGHT DECREASED [None]
  - MULTIPLE SCLEROSIS [None]
  - LUNG NEOPLASM MALIGNANT [None]
  - PULMONARY MASS [None]
  - URINARY TRACT INFECTION [None]
  - METASTASES TO BONE [None]
